FAERS Safety Report 11504740 (Version 1)
Quarter: 2015Q3

REPORT INFORMATION
  Report Type: Spontaneous
  Country: US (occurrence: US)
  Receive Date: 20150915
  Receipt Date: 20150915
  Transmission Date: 20151125
  Serious: No
  Sender: FDA-Public Use
  Company Number: US-ROCHE-757800

PATIENT
  Age: 44 Year
  Sex: Male

DRUGS (7)
  1. PEGASYS [Suspect]
     Active Substance: PEGINTERFERON ALFA-2A
     Indication: HEPATITIS C
     Dosage: PRE-FILLED SYRINGE
     Route: 058
     Dates: start: 201011, end: 20110121
  2. COMBIVENT [Concomitant]
     Active Substance: ALBUTEROL SULFATE\IPRATROPIUM BROMIDE
     Route: 065
  3. PROMETHAZINE [Concomitant]
     Active Substance: PROMETHAZINE\PROMETHAZINE HYDROCHLORIDE
     Route: 065
  4. NEXIUM [Concomitant]
     Active Substance: ESOMEPRAZOLE MAGNESIUM
     Route: 065
  5. COPEGUS [Suspect]
     Active Substance: RIBAVIRIN
     Indication: HEPATITIS C
     Dosage: 200 MG X 2 IN THE MORNING AND EVENING
     Route: 048
     Dates: start: 201011, end: 20110121
  6. ROBAXIN [Concomitant]
     Active Substance: METHOCARBAMOL
     Route: 065
  7. LISINOPRIL. [Concomitant]
     Active Substance: LISINOPRIL
     Route: 065

REACTIONS (4)
  - Visual acuity reduced [Not Recovered/Not Resolved]
  - Injection site mass [Unknown]
  - Dry skin [Unknown]
  - Product quality issue [Unknown]

NARRATIVE: CASE EVENT DATE: 20110127
